FAERS Safety Report 13008641 (Version 1)
Quarter: 2016Q4

REPORT INFORMATION
  Report Type: Spontaneous
  Country: US (occurrence: US)
  Receive Date: 20161208
  Receipt Date: 20161208
  Transmission Date: 20170207
  Serious: No
  Sender: FDA-Public Use
  Company Number: US-PFIZER INC-2016569903

PATIENT
  Age: 55 Year
  Sex: Female
  Weight: 61 kg

DRUGS (2)
  1. ESTRING [Suspect]
     Active Substance: ESTRADIOL
     Dosage: UNK
     Dates: start: 2016
  2. PREMARIN [Concomitant]
     Active Substance: ESTROGENS, CONJUGATED
     Dosage: 0.22 MG, 1X/DAY (ONE HALF OF 0.44 MG TABLET)

REACTIONS (4)
  - Vulvovaginal pain [Unknown]
  - Arthralgia [Unknown]
  - Vulvovaginal discomfort [Unknown]
  - Product size issue [Unknown]
